FAERS Safety Report 23751965 (Version 2)
Quarter: 2024Q2

REPORT INFORMATION
  Report Type: Report from Study
  Country: DE (occurrence: DE)
  Receive Date: 20240417
  Receipt Date: 20240513
  Transmission Date: 20240716
  Serious: Yes (Hospitalization)
  Sender: FDA-Public Use
  Company Number: DE-KRKA-DE2023K17892STU

PATIENT
  Age: 72 Year
  Sex: Female
  Weight: 59 kg

DRUGS (12)
  1. BORTEZOMIB [Suspect]
     Active Substance: BORTEZOMIB
     Indication: Plasma cell myeloma
     Dosage: 2.2 MILLIGRAM, QD (1.3 MG/M2 BODY SURFACE ON CYCLE DAYS 1, 4, 8, 11)
     Route: 065
     Dates: start: 20230904
  2. DEXAMETHASONE [Suspect]
     Active Substance: DEXAMETHASONE
     Indication: Plasma cell myeloma
     Dosage: 20 MILLIGRAM, QD (20 MG PER DAY ON CYCLE DAYS 1,2,4,5,8,9,11,12)
     Route: 048
     Dates: start: 20230904
  3. PANTOPRAZOLE [Concomitant]
     Active Substance: PANTOPRAZOLE
     Dosage: 40 MILLIGRAM, QD (40 MG, 1X PER DAY IN THE MORNING)
     Route: 065
  4. FOLIC ACID [Concomitant]
     Active Substance: FOLIC ACID
     Dosage: 5 MILLIGRAM, QD (5 MG, 1X PER DAY IN THE MORNING)
     Route: 065
  5. RAMIPRIL [Concomitant]
     Active Substance: RAMIPRIL
     Dosage: 5 MILLIGRAM, BID (5 MG, 2X PER DAY)
     Route: 065
  6. ELIQUIS [Concomitant]
     Active Substance: APIXABAN
     Dosage: 5 MILLIGRAM, BID (5 MG, 2X PER DAY)
     Route: 065
  7. Kalinor [Concomitant]
     Dosage: BID (2X PER DAY)
     Route: 065
  8. SPIRONOLACTONE [Concomitant]
     Active Substance: SPIRONOLACTONE
     Dosage: 25 MILLIGRAM, QD (25 MG, 1X PER DAY IN THE MORNING)
     Route: 065
  9. METAMIZOLE [Concomitant]
     Active Substance: METAMIZOLE
     Dosage: 40 MILLIGRAM, QID (40 MG, 4X PER DAY)
     Route: 065
  10. VITAMIN D [Concomitant]
     Active Substance: VITAMIN D NOS
     Dosage: 2000 INTERNATIONAL UNIT, QD (2000 IU, 1X PER DAY IN THE MORNING)
     Route: 065
  11. PALEXIA [Concomitant]
     Active Substance: TAPENTADOL HYDROCHLORIDE
     Dosage: 100 MILLIGRAM, BID (100 MG, 2X PER DAY)
     Route: 065
  12. METOPROLOL [Concomitant]
     Active Substance: METOPROLOL
     Dosage: 100 MILLIGRAM, QD (100 MG, 1X PER DAY IN THE MORNING)
     Route: 065

REACTIONS (3)
  - Cholecystitis [Recovered/Resolved]
  - Nausea [Recovered/Resolved]
  - Gastrointestinal infection [Recovered/Resolved]

NARRATIVE: CASE EVENT DATE: 20230925
